FAERS Safety Report 9691522 (Version 1)
Quarter: 2013Q4

REPORT INFORMATION
  Report Type: Spontaneous
  Country: AT (occurrence: AT)
  Receive Date: 20131115
  Receipt Date: 20131115
  Transmission Date: 20140711
  Serious: Yes (Other)
  Sender: FDA-Public Use
  Company Number: AT-ABBVIE-13P-009-1169878-00

PATIENT
  Sex: Male

DRUGS (1)
  1. TESTOGEL [Suspect]
     Indication: ANDROGEN DEFICIENCY

REACTIONS (2)
  - Drug hypersensitivity [Unknown]
  - Off label use [Unknown]
